FAERS Safety Report 5919593-8 (Version None)
Quarter: 2008Q4

REPORT INFORMATION
  Report Type: 
  Country: None (occurrence: None)
  Receive Date: 20081015
  Receipt Date: 20080421
  Transmission Date: 20090506
  Serious: No
  Sender: FDA-Public Use
  Company Number: US-BRISTOL-MYERS SQUIBB COMPANY-14158190

PATIENT
  Age: 45 Year
  Sex: Male
  Weight: 91 kg

DRUGS (12)
  1. KENALOG-40 [Suspect]
     Indication: BACK PAIN
     Dosage: 1 DOSAGE FORM:1.5ML/60MG,17APR08:1.5ML/60MGKENALOG-40MG,19APR08 RECEIVED ADDITIONAL INJ 1ML
     Route: 030
  2. VYTORIN [Concomitant]
  3. LISINOPRIL [Concomitant]
  4. TAZTIA [Concomitant]
  5. MULTI-VITAMIN [Concomitant]
  6. JANTOVEN [Concomitant]
  7. PRILOSEC [Concomitant]
  8. TERAZOSIN HCL [Concomitant]
  9. FENTANYL TRANSDERMAL SYSTEM [Concomitant]
  10. GABAPENTIN [Concomitant]
  11. TIZANIDINE HCL [Concomitant]
  12. OXYCONTIN [Concomitant]

REACTIONS (1)
  - DRUG INEFFECTIVE [None]
